FAERS Safety Report 21486133 (Version 1)
Quarter: 2022Q4

REPORT INFORMATION
  Report Type: Report from Study
  Country: US (occurrence: US)
  Receive Date: 20221020
  Receipt Date: 20221020
  Transmission Date: 20230112
  Serious: Yes (Other)
  Sender: FDA-Public Use
  Company Number: US-UCBSA-2022037560

PATIENT
  Age: 55 Year
  Sex: Male

DRUGS (3)
  1. CERTOLIZUMAB PEGOL [Suspect]
     Active Substance: CERTOLIZUMAB PEGOL
     Indication: Rheumatoid arthritis
     Dosage: 400 MILLIGRAM, EV 2 WEEKS(QOW)
     Dates: start: 20220621, end: 202209
  2. METHOTREXATE [Concomitant]
     Active Substance: METHOTREXATE
     Indication: Rheumatoid arthritis
     Dosage: UNK
  3. FOLIC ACID [Concomitant]
     Active Substance: FOLIC ACID
     Indication: Product used for unknown indication
     Dosage: UNK

REACTIONS (7)
  - Rheumatoid arthritis [Not Recovered/Not Resolved]
  - Skin exfoliation [Unknown]
  - Injection site pain [Not Recovered/Not Resolved]
  - Fear of injection [Not Recovered/Not Resolved]
  - Injection site nodule [Not Recovered/Not Resolved]
  - Injection site discharge [Not Recovered/Not Resolved]
  - Sunburn [Unknown]

NARRATIVE: CASE EVENT DATE: 20220621
